FAERS Safety Report 8019740-0 (Version None)
Quarter: 2012Q1

REPORT INFORMATION
  Report Type: 
  Country: None (occurrence: None)
  Receive Date: 20120103
  Receipt Date: 20111221
  Transmission Date: 20120608
  Serious: Yes (Other)
  Sender: FDA-Public Use
  Company Number: GB-GLAXOSMITHKLINE-B0770651A

PATIENT
  Age: 7 Year
  Sex: Female
  Weight: 22 kg

DRUGS (7)
  1. ACYCLOVIR [Suspect]
     Indication: ENCEPHALITIS
     Route: 042
     Dates: start: 20111207, end: 20111209
  2. LEVETIRACETAM [Concomitant]
  3. CEFOTAXIME [Concomitant]
  4. PROMETHAZINE [Concomitant]
  5. DIAZEPAM [Concomitant]
  6. DEXAMETHASONE [Concomitant]
  7. PHENYTOIN [Concomitant]

REACTIONS (2)
  - NEPHROPATHY TOXIC [None]
  - BLOOD CREATININE INCREASED [None]
